FAERS Safety Report 6832894-4 (Version None)
Quarter: 2010Q3

REPORT INFORMATION
  Report Type: 
  Country: None (occurrence: None)
  Receive Date: 20100712
  Receipt Date: 20070325
  Transmission Date: 20110219
  Serious: No
  Sender: FDA-Public Use
  Company Number: US-PFIZER INC-2007024279

PATIENT
  Age: 21 Year
  Sex: Female

DRUGS (1)
  1. CHANTIX [Suspect]
     Indication: SMOKING CESSATION THERAPY
     Dates: start: 20070321

REACTIONS (4)
  - ASTHENIA [None]
  - CHILLS [None]
  - INFLUENZA LIKE ILLNESS [None]
  - PYREXIA [None]
